FAERS Safety Report 4381270-5 (Version None)
Quarter: 2004Q2

REPORT INFORMATION
  Report Type: 
  Country: None (occurrence: None)
  Receive Date: 20040617
  Receipt Date: 20040617
  Transmission Date: 20050107
  Serious: No
  Sender: FDA-Public Use
  Company Number: None

PATIENT
  Age: 81 Year
  Sex: Male

DRUGS (6)
  1. CIPROFLOXACIN [Suspect]
     Indication: ANIMAL SCRATCH
     Dosage: 500 MG BID
     Dates: start: 19950801, end: 19950814
  2. CIPROFLOXACIN [Suspect]
     Indication: INFECTION
     Dosage: 500 MG BID
     Dates: start: 19950801, end: 19950814
  3. PENICILLIN V POTASSIUM [Suspect]
     Indication: ANIMAL SCRATCH
     Dosage: 500 MG BID
     Dates: start: 19950801, end: 19950814
  4. PENICILLIN V POTASSIUM [Suspect]
     Indication: INFECTION
     Dosage: 500 MG BID
     Dates: start: 19950801, end: 19950814
  5. PRINIVIL [Concomitant]
  6. HYDROCHLOROTHIAZIDE [Concomitant]

REACTIONS (1)
  - ANGIONEUROTIC OEDEMA [None]
